FAERS Safety Report 23978503 (Version 1)
Quarter: 2024Q2

REPORT INFORMATION
  Report Type: Spontaneous
  Country: US (occurrence: US)
  Receive Date: 20240614
  Receipt Date: 20240614
  Transmission Date: 20240715
  Serious: No
  Sender: FDA-Public Use
  Company Number: US-FMCRTG-FMC-2405-000631

PATIENT
  Age: 77 Year
  Sex: Male
  Weight: 101 kg

DRUGS (3)
  1. DELFLEX WITH DEXTROSE 1.5% LOW MAGNESIUM LOW CALCIUM [Suspect]
     Active Substance: CALCIUM CHLORIDE\DEXTROSE\MAGNESIUM CHLORIDE\SODIUM CHLORIDE\SODIUM LACTATE
     Indication: End stage renal disease
     Dosage: CA 2.5 (MEQ/L) MG 0.5 (MEQ/L), EXCHANGES 4, FILL VOL 2000 ML CYC THERAPY VOL 8000 ML CYC THERAPY TIM
     Route: 033
  2. DELFLEX WITH DEXTROSE 2.5% LOW MAGNESIUM LOW CALCIUM [Suspect]
     Active Substance: CALCIUM CHLORIDE\DEXTROSE\MAGNESIUM CHLORIDE\SODIUM CHLORIDE\SODIUM LACTATE
     Indication: End stage renal disease
     Dosage: CA 2.5 (MEQ/L) MG 0.5 (MEQ/L), EXCHANGES 4, FILL VOL 2000 ML CYC THERAPY VOL 8000 ML CYC THERAPY TIM
     Route: 033
  3. DELFLEX WITH DEXTROSE 4.25% LOW MAGNESIUM LOW CALCIUM [Suspect]
     Active Substance: CALCIUM CHLORIDE\DEXTROSE\MAGNESIUM CHLORIDE\SODIUM CHLORIDE\SODIUM LACTATE
     Indication: End stage renal disease
     Dosage: CA 2.5 (MEQ/L) MG 0.5 (MEQ/L), EXCHANGES 4, FILL VOL 2000 ML CYC THERAPY VOL 8000 ML CYC THERAPY TIM
     Route: 033

REACTIONS (1)
  - Rash [Recovered/Resolved]
